FAERS Safety Report 7300115-4 (Version None)
Quarter: 2011Q1

REPORT INFORMATION
  Report Type: 
  Country: None (occurrence: None)
  Receive Date: 20110217
  Receipt Date: 20110214
  Transmission Date: 20110831
  Serious: Yes (Death)
  Sender: FDA-Public Use
  Company Number: US-GENENTECH-313126

PATIENT
  Sex: Male
  Weight: 104.76 kg

DRUGS (11)
  1. XOLAIR [Suspect]
     Indication: NASAL POLYPS
  2. ZYRTEC [Concomitant]
     Indication: PRODUCT USED FOR UNKNOWN INDICATION
  3. PRILOSEC [Concomitant]
     Indication: PRODUCT USED FOR UNKNOWN INDICATION
  4. XOLAIR [Suspect]
     Indication: RHINITIS ALLERGIC
  5. OINTMENT (UNK INGREDIENTS) [Concomitant]
     Indication: PRODUCT USED FOR UNKNOWN INDICATION
  6. VERAMYST [Concomitant]
     Indication: PRODUCT USED FOR UNKNOWN INDICATION
  7. QVAR 40 [Concomitant]
     Indication: PRODUCT USED FOR UNKNOWN INDICATION
  8. PROVENTIL [Concomitant]
     Indication: PRODUCT USED FOR UNKNOWN INDICATION
  9. XOLAIR [Suspect]
     Indication: ASTHMA
     Dosage: 300 MG, 1/MONTH
     Route: 058
     Dates: start: 20090624, end: 20101222
  10. TEMOVATE [Concomitant]
     Indication: PRODUCT USED FOR UNKNOWN INDICATION
  11. ADVAIR [Concomitant]
     Indication: PRODUCT USED FOR UNKNOWN INDICATION

REACTIONS (2)
  - CHEST DISCOMFORT [None]
  - ASTHMA [None]
